FAERS Safety Report 21937074 (Version 1)
Quarter: 2023Q1

REPORT INFORMATION
  Report Type: Report from Study
  Country: IT (occurrence: IT)
  Receive Date: 20230201
  Receipt Date: 20230201
  Transmission Date: 20230418
  Serious: Yes (Hospitalization)
  Sender: FDA-Public Use
  Company Number: None

PATIENT
  Age: 14 Year
  Sex: Female
  Weight: 63 kg

DRUGS (4)
  1. VINCRISTINE [Suspect]
     Active Substance: VINCRISTINE
     Indication: Ependymoma malignant
     Dosage: 2 MILLIGRAM DAILY; 2 MG/DAY ON 11/15/22  , VINCRISTINA TEVA ITALIA
     Dates: start: 20221115, end: 20221115
  2. ETOPOSIDE [Suspect]
     Active Substance: ETOPOSIDE
     Indication: Ependymoma malignant
     Dosage: 163 MILLIGRAM DAILY; 163 MG/DAY FROM DAY 15 TO DAY 11/17/22
     Dates: start: 20221115, end: 20221117
  3. CYCLOPHOSPHAMIDE [Suspect]
     Active Substance: CYCLOPHOSPHAMIDE
     Indication: Ependymoma malignant
     Dosage: 1633 MILLIGRAM DAILY; 1633 MG/DAY (X 3 SUMS) ON 11/15/22
     Dates: start: 20221115, end: 20221115
  4. LEVETIRACETAM [Concomitant]
     Active Substance: LEVETIRACETAM
     Indication: Tonic convulsion
     Dosage: 1000 MILLIGRAM DAILY; 1000 MG/DAY
     Dates: start: 20221017

REACTIONS (4)
  - Leukopenia [Recovered/Resolved]
  - Febrile neutropenia [Recovered/Resolved]
  - Respiratory tract infection viral [Recovered/Resolved]
  - Anaemia [Not Recovered/Not Resolved]

NARRATIVE: CASE EVENT DATE: 20221117
